FAERS Safety Report 9544266 (Version 3)
Quarter: 2014Q2

REPORT INFORMATION
  Report Type: Spontaneous
  Country: CA (occurrence: CA)
  Receive Date: 20130923
  Receipt Date: 20140408
  Transmission Date: 20141212
  Serious: Yes (Death)
  Sender: FDA-Public Use
  Company Number: CA-CELGENEUS-028-50794-13093000

PATIENT
  Age: 43 Year
  Sex: Female

DRUGS (2)
  1. VIDAZA [Suspect]
     Indication: ACUTE MYELOID LEUKAEMIA
     Dosage: 75 MILLIGRAM/SQ. METER
     Route: 058
     Dates: start: 20130116, end: 20130702
  2. VORICONAZOLE [Concomitant]
     Indication: PNEUMONIA
     Route: 065

REACTIONS (1)
  - Acute myeloid leukaemia [Fatal]
